FAERS Safety Report 13158195 (Version 1)
Quarter: 2017Q1

REPORT INFORMATION
  Report Type: Other
  Country: US (occurrence: US)
  Receive Date: 20170127
  Receipt Date: 20170127
  Transmission Date: 20170428
  Serious: Yes (Other)
  Sender: FDA-Public Use
  Company Number: US-LUPIN PHARMACEUTICALS INC.-2017-00359

PATIENT
  Age: 49 Year
  Sex: Female
  Weight: 46.5 kg

DRUGS (17)
  1. LAMOTRIGINE. [Suspect]
     Active Substance: LAMOTRIGINE
     Indication: MELAS SYNDROME
     Route: 065
  2. LAMOTRIGINE. [Suspect]
     Active Substance: LAMOTRIGINE
     Dosage: TAPERED DOSE
     Route: 065
  3. VITAMIN E [Concomitant]
     Active Substance: .ALPHA.-TOCOPHEROL
     Indication: MELAS SYNDROME
     Route: 065
  4. LEVETIRACETAM. [Suspect]
     Active Substance: LEVETIRACETAM
     Indication: MELAS SYNDROME
     Route: 065
  5. GLUCOSE [Concomitant]
     Active Substance: DEXTROSE
     Indication: MELAS SYNDROME
     Route: 042
  6. CLONAZAPAN [Concomitant]
     Indication: EPILEPSY
     Route: 065
  7. L-ARGININE [Concomitant]
     Active Substance: ARGININE
     Indication: MELAS SYNDROME
     Route: 065
  8. VITAMIN C [Concomitant]
     Active Substance: ASCORBIC ACID
     Indication: MELAS SYNDROME
     Route: 065
  9. VITAMIN D [Concomitant]
     Active Substance: CHOLECALCIFEROL
     Indication: MELAS SYNDROME
     Route: 065
  10. PHENYTOIN. [Suspect]
     Active Substance: PHENYTOIN
     Route: 065
  11. PHENYTOIN. [Suspect]
     Active Substance: PHENYTOIN
     Route: 065
  12. PHENYTOIN. [Suspect]
     Active Substance: PHENYTOIN
     Indication: MELAS SYNDROME
     Route: 065
  13. LEVETIRACETAM. [Suspect]
     Active Substance: LEVETIRACETAM
     Dosage: TAPERED DOSE
     Route: 065
  14. VITAMIN B12 [Concomitant]
     Active Substance: CYANOCOBALAMIN
     Indication: MELAS SYNDROME
     Route: 065
  15. LEVOTHYROXINE. [Concomitant]
     Active Substance: LEVOTHYROXINE
     Indication: HYPOTHYROIDISM
     Route: 065
  16. UBIQUINONE [Concomitant]
     Active Substance: UBIDECARENONE
     Indication: MELAS SYNDROME
     Route: 065
  17. CALCIUM [Concomitant]
     Active Substance: CALCIUM
     Indication: MELAS SYNDROME
     Route: 065

REACTIONS (2)
  - Confusional state [Recovering/Resolving]
  - Sedation [Recovering/Resolving]
